FAERS Safety Report 6433020-6 (Version None)
Quarter: 2009Q4

REPORT INFORMATION
  Report Type: 
  Country: None (occurrence: None)
  Receive Date: 20091109
  Receipt Date: 20091102
  Transmission Date: 20100525
  Serious: Yes (Life-Threatening, Hospitalization, Other)
  Sender: FDA-Public Use
  Company Number: DE-ELI_LILLY_AND_COMPANY-DE200911000354

PATIENT
  Age: 56 Year
  Sex: Male

DRUGS (8)
  1. GEMZAR [Suspect]
     Indication: BILE DUCT CANCER
     Dosage: 1000 MG/M2, UNK
     Route: 042
     Dates: start: 20090301, end: 20090901
  2. PANTOPRAZOLE SODIUM [Concomitant]
  3. RAMIPRIL [Concomitant]
  4. CITALOPRAM HYDROBROMIDE [Concomitant]
  5. CALCILAC /00944201/ [Concomitant]
  6. PREDNISOLONE [Concomitant]
  7. MCP [Concomitant]
  8. NOVALGIN [Concomitant]

REACTIONS (3)
  - CONVULSION [None]
  - ENCEPHALOPATHY [None]
  - THROMBOTIC THROMBOCYTOPENIC PURPURA [None]
